FAERS Safety Report 4357756-6 (Version None)
Quarter: 2004Q2

REPORT INFORMATION
  Report Type: 
  Country: None (occurrence: None)
  Receive Date: 20040510
  Receipt Date: 20040426
  Transmission Date: 20050107
  Serious: Yes (Other)
  Sender: FDA-Public Use
  Company Number: 04UK 0051 94

PATIENT
  Age: 86 Year
  Sex: Male

DRUGS (6)
  1. AGGRASTAT [Suspect]
     Indication: MYOCARDIAL INFARCTION
     Dosage: INTRAVENOUS
     Route: 042
     Dates: start: 20040412, end: 20040414
  2. FUROSEMIDE [Concomitant]
  3. OXYBUTYNIN [Concomitant]
  4. ASPIRIN [Concomitant]
  5. DIGOXIN [Concomitant]
  6. DOXAZOSIN MESYLATE [Concomitant]

REACTIONS (1)
  - AGGRESSION [None]
